FAERS Safety Report 7166853-1 (Version None)
Quarter: 2010Q4

REPORT INFORMATION
  Report Type: 
  Country: None (occurrence: None)
  Receive Date: 20101216
  Receipt Date: 20101207
  Transmission Date: 20110411
  Serious: Yes (Congenital Anomaly)
  Sender: FDA-Public Use
  Company Number: GB-ASTRAZENECA-2010SE57838

PATIENT
  Age: 0 Week
  Sex: Male
  Weight: 3.3 kg

DRUGS (2)
  1. QUETIAPINE [Suspect]
     Indication: SCHIZOPHRENIA
     Route: 064
     Dates: start: 20080325
  2. FOLIC ACID [Concomitant]
     Route: 064

REACTIONS (3)
  - HERNIA CONGENITAL [None]
  - PATENT DUCTUS ARTERIOSUS [None]
  - PULMONARY ARTERY STENOSIS [None]
